FAERS Safety Report 9976008 (Version 1)
Quarter: 2014Q1

REPORT INFORMATION
  Report Type: Spontaneous
  Country: US (occurrence: US)
  Receive Date: 20140306
  Receipt Date: 20140306
  Transmission Date: 20141002
  Serious: No
  Sender: FDA-Public Use
  Company Number: US-PFIZER INC-2014062124

PATIENT
  Age: 46 Year
  Sex: Female
  Weight: 149.66 kg

DRUGS (3)
  1. LYRICA [Suspect]
     Indication: NEURALGIA
     Dosage: 100 MG, 1X/DAY
     Dates: start: 2013
  2. LYRICA [Suspect]
     Dosage: 100 MG, 3X/DAY
  3. METOPROLOL [Concomitant]
     Indication: HYPERTENSION
     Dosage: UNK

REACTIONS (1)
  - Drug effect incomplete [Unknown]
